FAERS Safety Report 18165976 (Version 1)
Quarter: 2020Q3

REPORT INFORMATION
  Report Type: Spontaneous
  Country: US (occurrence: US)
  Receive Date: 20200819
  Receipt Date: 20200819
  Transmission Date: 20201103
  Serious: No
  Sender: FDA-Public Use
  Company Number: US-009507513-2008USA009397

PATIENT
  Age: 16 Year
  Sex: Female
  Weight: 45.35 kg

DRUGS (2)
  1. ZYRTEC [Concomitant]
     Active Substance: CETIRIZINE HYDROCHLORIDE
     Dosage: UNK
  2. NEXPLANON [Suspect]
     Active Substance: ETONOGESTREL
     Indication: CONTRACEPTION
     Dosage: 1 IMPLANT, LEFT ARM
     Route: 059
     Dates: start: 20191029

REACTIONS (1)
  - Menstruation irregular [Not Recovered/Not Resolved]

NARRATIVE: CASE EVENT DATE: 20200101
